FAERS Safety Report 17845252 (Version 5)
Quarter: 2020Q3

REPORT INFORMATION
  Report Type: Report from Study
  Country: US (occurrence: US)
  Receive Date: 20200601
  Receipt Date: 20200817
  Transmission Date: 20201103
  Serious: No
  Sender: FDA-Public Use
  Company Number: NVSC2020US148737

PATIENT
  Sex: Female

DRUGS (1)
  1. MAYZENT [Suspect]
     Active Substance: SIPONIMOD
     Indication: PRODUCT USED FOR UNKNOWN INDICATION
     Dosage: 2 MG
     Route: 065

REACTIONS (9)
  - Peroneal nerve palsy [Unknown]
  - White blood cell count decreased [Unknown]
  - Malaise [Unknown]
  - Erythema [Unknown]
  - Wrong technique in product usage process [Unknown]
  - Condition aggravated [Unknown]
  - Muscle spasms [Unknown]
  - Musculoskeletal discomfort [Unknown]
  - Crying [Unknown]
